FAERS Safety Report 4832465-5 (Version None)
Quarter: 2005Q4

REPORT INFORMATION
  Report Type: 
  Country: None (occurrence: None)
  Receive Date: 20051116
  Receipt Date: 20051101
  Transmission Date: 20060501
  Serious: Yes (Death, Hospitalization)
  Sender: FDA-Public Use
  Company Number: 2005S1004693

PATIENT
  Age: 72 Year
  Sex: Male

DRUGS (5)
  1. APOKYN [Suspect]
     Indication: PARKINSON'S DISEASE
     Dosage: 0.3ML;QD;SC
     Route: 058
     Dates: start: 20050503, end: 20050505
  2. CARBIDOPA AND LEVODOPA [Concomitant]
  3. ENTACAPONE [Concomitant]
  4. TRIMETHOBENZAMIDE HCL [Concomitant]
  5. PERGOLIDE MESYLATE [Concomitant]

REACTIONS (3)
  - MUSCLE RIGIDITY [None]
  - MYOCARDIAL INFARCTION [None]
  - TREMOR [None]
